FAERS Safety Report 11599064 (Version 1)
Quarter: 2015Q4

REPORT INFORMATION
  Report Type: Spontaneous
  Country: BE (occurrence: BE)
  Receive Date: 20151006
  Receipt Date: 20151006
  Transmission Date: 20160304
  Serious: Yes (Other)
  Sender: FDA-Public Use
  Company Number: PHHY2015BE117535

PATIENT
  Age: 80 Year
  Sex: Male

DRUGS (2)
  1. MICTONORM [Interacting]
     Active Substance: PROPIVERINE HYDROCHLORIDE
     Indication: URINARY TRACT DISORDER
     Dosage: UNK
     Route: 065
     Dates: start: 201509, end: 201509
  2. ULTIBRO BREEZHALER [Suspect]
     Active Substance: GLYCOPYRRONIUM\INDACATEROL
     Indication: PRODUCT USED FOR UNKNOWN INDICATION
     Dosage: UNK
     Route: 055
     Dates: start: 201508

REACTIONS (2)
  - Hallucination, visual [Recovered/Resolved]
  - Drug interaction [Unknown]

NARRATIVE: CASE EVENT DATE: 201509
